FAERS Safety Report 21663296 (Version 14)
Quarter: 2023Q1

REPORT INFORMATION
  Report Type: Report from Study
  Country: CA (occurrence: None)
  Receive Date: 20221130
  Receipt Date: 20230228
  Transmission Date: 20230418
  Serious: Yes (Death, Hospitalization)
  Sender: FDA-Public Use
  Company Number: CA-Eisai Medical Research-EC-2022-129032

PATIENT
  Age: 58 Year
  Sex: Male
  Weight: 70.76 kg

DRUGS (22)
  1. LENVATINIB [Suspect]
     Active Substance: LENVATINIB
     Indication: Renal cell carcinoma
     Route: 048
     Dates: start: 20220927, end: 20221012
  2. LENVATINIB [Suspect]
     Active Substance: LENVATINIB
     Dosage: STARTING DOSE OF 30 MG, FLUCTUATED DOSAGE
     Route: 048
     Dates: start: 20221013, end: 20221121
  3. BELZUTIFAN [Suspect]
     Active Substance: BELZUTIFAN
     Indication: Renal cell carcinoma
     Route: 048
     Dates: start: 20220927, end: 20221121
  4. BISOPROLOL [Concomitant]
     Active Substance: BISOPROLOL
     Dates: start: 20220728, end: 20221125
  5. MORPHINE [Concomitant]
     Active Substance: MORPHINE
     Dates: start: 20220912, end: 20221121
  6. CLOPIDOGREL [Concomitant]
     Active Substance: CLOPIDOGREL BISULFATE
     Dates: start: 20220311, end: 20221125
  7. JARDIANCE [Concomitant]
     Active Substance: EMPAGLIFLOZIN
     Dates: start: 20220317, end: 20221121
  8. LEVOTHYROXINE SODIUM [Concomitant]
     Active Substance: LEVOTHYROXINE SODIUM
     Dates: start: 20140312, end: 20221125
  9. ASPIRIN [Concomitant]
     Active Substance: ASPIRIN
     Dates: start: 20220728, end: 20221125
  10. METFORMIN [Concomitant]
     Active Substance: METFORMIN HYDROCHLORIDE
     Dates: start: 20220317, end: 20221122
  11. KADIAN [Concomitant]
     Active Substance: MORPHINE SULFATE
     Dates: start: 20220601, end: 20221121
  12. PANTOPRAZOLE [Concomitant]
     Active Substance: PANTOPRAZOLE
     Dates: start: 20120112, end: 20221125
  13. ROSUVASTATIN [Concomitant]
     Active Substance: ROSUVASTATIN
     Dates: start: 20220317, end: 20221125
  14. SENNOSIDES [Concomitant]
     Active Substance: SENNOSIDES
     Dates: start: 20220728, end: 20221121
  15. TRANDOLAPRIL [Concomitant]
     Active Substance: TRANDOLAPRIL
     Dates: start: 20220317, end: 20221121
  16. CYANOCOBALAMIN [Concomitant]
     Active Substance: CYANOCOBALAMIN
     Dates: start: 20220309, end: 20221121
  17. CODEINE [Concomitant]
     Active Substance: CODEINE
     Dates: start: 20180111, end: 20221121
  18. ACETAMINOPHEN [Concomitant]
     Active Substance: ACETAMINOPHEN
     Dates: start: 202203, end: 20221121
  19. LORAZEPAM [Concomitant]
     Active Substance: LORAZEPAM
     Dates: start: 20220607, end: 20221121
  20. BENADRYL [Concomitant]
     Active Substance: DIPHENHYDRAMINE HYDROCHLORIDE
     Dates: start: 20220601, end: 20221121
  21. NITROGLYCERIN [Concomitant]
     Active Substance: NITROGLYCERIN
     Dates: start: 20220317, end: 20221121
  22. POLYETHYLENE GLYCOL 3350 [Concomitant]
     Active Substance: POLYETHYLENE GLYCOL 3350
     Dates: start: 20220602, end: 20221125

REACTIONS (2)
  - Pneumonitis [Fatal]
  - Hypoxia [Recovered/Resolved]

NARRATIVE: CASE EVENT DATE: 20221004
